FAERS Safety Report 13717425 (Version 25)
Quarter: 2022Q4

REPORT INFORMATION
  Report Type: Spontaneous
  Country: BR (occurrence: BR)
  Receive Date: 20170705
  Receipt Date: 20221108
  Transmission Date: 20230113
  Serious: Yes (Other)
  Sender: FDA-Public Use
  Company Number: BR-GLAXOSMITHKLINE-BR2015GSK176439

PATIENT

DRUGS (8)
  1. BENLYSTA [Suspect]
     Active Substance: BELIMUMAB
     Indication: Systemic lupus erythematosus
     Dosage: UNK, 9 VIALS OF 120MG
     Route: 050
     Dates: start: 20151203
  2. BENLYSTA [Suspect]
     Active Substance: BELIMUMAB
     Dosage: 100 MG, Z
     Route: 042
  3. DIPHENHYDRAMINE HYDROCHLORIDE [Concomitant]
     Active Substance: DIPHENHYDRAMINE HYDROCHLORIDE
     Indication: Product used for unknown indication
     Dosage: UNK
  4. LOSARTAN [Concomitant]
     Active Substance: LOSARTAN
     Indication: Hypertension
     Dosage: 50 MG, BID
     Route: 048
  5. METFORMIN [Concomitant]
     Active Substance: METFORMIN HYDROCHLORIDE
     Indication: Diabetes mellitus
     Dosage: 850 MG, 1D
     Route: 048
  6. AMLODIPINE BESYLATE [Concomitant]
     Active Substance: AMLODIPINE BESYLATE
     Indication: Diabetes mellitus
     Dosage: UNK
     Route: 048
  7. LINAGLIPTIN [Concomitant]
     Active Substance: LINAGLIPTIN
     Indication: Product used for unknown indication
     Dosage: UNK
  8. GLICLAZIDE [Concomitant]
     Active Substance: GLICLAZIDE
     Indication: Product used for unknown indication
     Dosage: UNK

REACTIONS (67)
  - Diabetes mellitus [Unknown]
  - Systemic lupus erythematosus [Unknown]
  - Hypersensitivity [Recovered/Resolved]
  - Skin disorder [Recovered/Resolved]
  - Tongue disorder [Recovered/Resolved]
  - Nervousness [Recovered/Resolved]
  - Depressed mood [Recovered/Resolved]
  - Pain [Recovered/Resolved]
  - Skin burning sensation [Recovered/Resolved]
  - Dizziness [Recovered/Resolved]
  - Amnesia [Recovered/Resolved]
  - Abnormal behaviour [Recovered/Resolved]
  - Hypoacusis [Recovered/Resolved]
  - Somnolence [Unknown]
  - Fatigue [Recovered/Resolved]
  - Agitation [Recovered/Resolved]
  - Asthenia [Not Recovered/Not Resolved]
  - Aggression [Unknown]
  - Depression [Recovered/Resolved]
  - Pharyngeal disorder [Recovered/Resolved]
  - Gait disturbance [Recovered/Resolved]
  - Road traffic accident [Recovered/Resolved]
  - Blood glucose decreased [Recovered/Resolved]
  - Head injury [Recovered/Resolved]
  - Spinal pain [Recovered/Resolved]
  - Blood pressure increased [Unknown]
  - Decreased immune responsiveness [Unknown]
  - Ear pain [Unknown]
  - Back pain [Unknown]
  - Hyperhidrosis [Unknown]
  - Blood pressure fluctuation [Unknown]
  - Influenza [Not Recovered/Not Resolved]
  - Rhinitis [Unknown]
  - Chest pain [Unknown]
  - Abdominal pain upper [Unknown]
  - Oropharyngeal pain [Unknown]
  - Memory impairment [Unknown]
  - Headache [Unknown]
  - Weight decreased [Unknown]
  - Movement disorder [Unknown]
  - Pain in extremity [Unknown]
  - Motor dysfunction [Unknown]
  - Wound [Recovering/Resolving]
  - Crying [Not Recovered/Not Resolved]
  - Eye disorder [Unknown]
  - Hypermetropia [Unknown]
  - Cerebral disorder [Unknown]
  - Dyspnoea [Unknown]
  - Joint swelling [Unknown]
  - Malaise [Unknown]
  - Diarrhoea [Unknown]
  - Choking sensation [Unknown]
  - Insomnia [Not Recovered/Not Resolved]
  - Urinary tract infection [Unknown]
  - Loss of personal independence in daily activities [Unknown]
  - Anxiety [Unknown]
  - Influenza like illness [Recovered/Resolved]
  - Cough [Recovered/Resolved]
  - Rhinorrhoea [Recovered/Resolved]
  - Pyrexia [Recovered/Resolved]
  - Fatigue [Unknown]
  - Ill-defined disorder [Unknown]
  - Intentional product misuse [Recovered/Resolved]
  - Product dose omission issue [Unknown]
  - Product availability issue [Unknown]
  - Circumstance or information capable of leading to medication error [Recovered/Resolved]
  - Inappropriate schedule of product administration [Unknown]

NARRATIVE: CASE EVENT DATE: 20161114
